FAERS Safety Report 10100604 (Version 1)
Quarter: 2014Q2

REPORT INFORMATION
  Report Type: Spontaneous
  Country: US (occurrence: US)
  Receive Date: 20140423
  Receipt Date: 20140423
  Transmission Date: 20141212
  Serious: No
  Sender: FDA-Public Use
  Company Number: US-009507513-1404USA011025

PATIENT
  Sex: Male

DRUGS (2)
  1. SINGULAIR [Suspect]
     Indication: NASOPHARYNGITIS
     Route: 048
  2. SINGULAIR [Suspect]
     Indication: SINUS DISORDER

REACTIONS (2)
  - Sleep disorder [Unknown]
  - Off label use [Unknown]
